FAERS Safety Report 13451459 (Version 3)
Quarter: 2017Q3

REPORT INFORMATION
  Report Type: Spontaneous
  Country: US (occurrence: US)
  Receive Date: 20170418
  Receipt Date: 20170807
  Transmission Date: 20171127
  Serious: Yes (Other)
  Sender: FDA-Public Use
  Company Number: US-LUPIN PHARMACEUTICALS INC.-2016-04657

PATIENT
  Age: 30 Year
  Sex: Female
  Weight: 99.77 kg

DRUGS (1)
  1. MY WAY [Suspect]
     Active Substance: LEVONORGESTREL
     Indication: POST COITAL CONTRACEPTION
     Dosage: 1.5 MG, SINGLE
     Route: 048
     Dates: start: 20160926, end: 20160926

REACTIONS (1)
  - Pregnancy after post coital contraception [Unknown]

NARRATIVE: CASE EVENT DATE: 20161010
